FAERS Safety Report 7153962-6 (Version None)
Quarter: 2010Q4

REPORT INFORMATION
  Report Type: 
  Country: None (occurrence: None)
  Receive Date: 20101213
  Receipt Date: 20101130
  Transmission Date: 20110411
  Serious: Yes (Death, Other)
  Sender: FDA-Public Use
  Company Number: US-CELGENEUS-163-22393-10120228

PATIENT

DRUGS (2)
  1. ISTODAX [Suspect]
     Indication: T-CELL LYMPHOMA
     Route: 051
  2. ISTODAX [Suspect]
     Route: 051

REACTIONS (20)
  - ALANINE AMINOTRANSFERASE INCREASED [None]
  - ANAEMIA [None]
  - ARRHYTHMIA SUPRAVENTRICULAR [None]
  - ASPARTATE AMINOTRANSFERASE INCREASED [None]
  - DEATH [None]
  - DECREASED APPETITE [None]
  - DISEASE PROGRESSION [None]
  - FATIGUE [None]
  - FEBRILE NEUTROPENIA [None]
  - GRANULOCYTOPENIA [None]
  - HYPERURICAEMIA [None]
  - HYPOCALCAEMIA [None]
  - HYPOKALAEMIA [None]
  - HYPOPHOSPHATAEMIA [None]
  - LEUKOPENIA [None]
  - LYMPHOPENIA [None]
  - NAUSEA [None]
  - SEPSIS [None]
  - THROMBOCYTOPENIA [None]
  - VOMITING [None]
